FAERS Safety Report 9502065 (Version 4)
Quarter: 2013Q4

REPORT INFORMATION
  Report Type: Spontaneous
  Country: US (occurrence: US)
  Receive Date: 20130905
  Receipt Date: 20131111
  Transmission Date: 20140711
  Serious: Yes (Other)
  Sender: FDA-Public Use
  Company Number: US-GILEAD-2013-0082035

PATIENT
  Sex: Female

DRUGS (2)
  1. LETAIRIS [Suspect]
     Indication: PULMONARY HYPERTENSION
     Dosage: 5 MG, QD
     Dates: start: 20130730
  2. LETAIRIS [Suspect]
     Indication: CONNECTIVE TISSUE DISORDER

REACTIONS (4)
  - Pelvic fracture [Unknown]
  - Gait disturbance [Unknown]
  - Oedema peripheral [Recovered/Resolved]
  - Swelling [Recovered/Resolved]
